FAERS Safety Report 9521442 (Version 1)
Quarter: 2013Q3

REPORT INFORMATION
  Report Type: Spontaneous
  Country: ZA (occurrence: ZA)
  Receive Date: 20130913
  Receipt Date: 20130913
  Transmission Date: 20140515
  Serious: Yes (Death)
  Sender: FDA-Public Use
  Company Number: ZA-009507513-1309ZAF004362

PATIENT
  Age: 60 Year
  Sex: Male

DRUGS (4)
  1. ASMANEX TWISTHALER [Suspect]
     Indication: ASTHMA
     Route: 055
  2. OXYGEN [Concomitant]
  3. SYMBICORT [Concomitant]
  4. SINGULAIR [Concomitant]

REACTIONS (1)
  - Disease complication [Fatal]
